FAERS Safety Report 19446956 (Version 1)
Quarter: 2021Q2

REPORT INFORMATION
  Report Type: Spontaneous
  Country: US (occurrence: US)
  Receive Date: 20210621
  Receipt Date: 20210621
  Transmission Date: 20210717
  Serious: Yes (Hospitalization)
  Sender: FDA-Public Use
  Company Number: None

PATIENT
  Sex: Female

DRUGS (1)
  1. COPAXONE [Suspect]
     Active Substance: GLATIRAMER ACETATE
     Indication: MULTIPLE SCLEROSIS
     Route: 058
     Dates: start: 20111128

REACTIONS (7)
  - Dizziness [None]
  - Fall [None]
  - Economic problem [None]
  - Tooth fracture [None]
  - Disorientation [None]
  - Upper limb fracture [None]
  - Therapy interrupted [None]
